FAERS Safety Report 5586343-7 (Version None)
Quarter: 2008Q1

REPORT INFORMATION
  Report Type: 
  Country: None (occurrence: None)
  Receive Date: 20080110
  Receipt Date: 20080102
  Transmission Date: 20080703
  Serious: Yes (Other)
  Sender: FDA-Public Use
  Company Number: PHBS2008GB00585

PATIENT
  Age: 72 Year
  Sex: Female

DRUGS (12)
  1. BETAMETHASONE [Suspect]
     Indication: CATARACT OPERATION
     Dosage: UNK, UNK
     Dates: start: 20070605, end: 20070605
  2. CHLORAMPHENICOL (NVO) [Suspect]
     Indication: CATARACT OPERATION
     Dosage: 1 DF, UNK
     Route: 047
     Dates: start: 20070605, end: 20070605
  3. CYCLOPENTOLATE (NVO) [Suspect]
     Indication: CATARACT OPERATION
     Dosage: 1 DF, UNK
     Route: 047
     Dates: start: 20070605, end: 20070605
  4. HYALURONIC ACID (NVO) [Suspect]
     Indication: CATARACT OPERATION
     Dates: start: 20070605, end: 20070605
  5. LIDOCAINE [Suspect]
     Indication: CATARACT OPERATION
     Dosage: 2 ML
     Dates: start: 20070605, end: 20070605
  6. NEOMYCIN [Suspect]
     Indication: POSTOPERATIVE CARE
     Route: 047
     Dates: start: 20070605, end: 20070605
  7. OCUFEN [Suspect]
     Indication: CATARACT OPERATION
     Route: 047
     Dates: start: 20070605, end: 20070605
  8. PHENYLEPHRINE (NVO) [Suspect]
     Indication: CATARACT OPERATION
     Dosage: 1 DF, UNK
     Route: 047
     Dates: start: 20070605, end: 20070605
  9. POVIDONE IODINE [Suspect]
     Indication: CATARACT OPERATION
     Route: 047
     Dates: start: 20070605, end: 20070605
  10. VANCOMYCIN [Suspect]
     Indication: CATARACT OPERATION
     Dosage: 10 MG, UNK
     Route: 047
     Dates: start: 20070605, end: 20070605
  11. ADRENALINE [Suspect]
     Indication: CATARACT OPERATION
     Dosage: 0.3 ML, UNK
     Route: 047
     Dates: start: 20070605, end: 20070605
  12. BSS [Suspect]

REACTIONS (1)
  - TOXIC ANTERIOR SEGMENT SYNDROME [None]
